FAERS Safety Report 12323727 (Version 3)
Quarter: 2016Q2

REPORT INFORMATION
  Report Type: Report from Study
  Country: US (occurrence: US)
  Receive Date: 20160502
  Receipt Date: 20160531
  Transmission Date: 20160815
  Serious: Yes (Hospitalization, Other)
  Sender: FDA-Public Use
  Company Number: US-ACTELION-A-NJ2016-135276

PATIENT
  Age: 9 Year
  Sex: Male

DRUGS (2)
  1. TRACLEER [Suspect]
     Active Substance: BOSENTAN
     Indication: PULMONARY ARTERIAL HYPERTENSION
     Dosage: 46.875 MG, BID
     Route: 048
     Dates: start: 20141023
  2. REMODULIN [Concomitant]
     Active Substance: TREPROSTINIL
     Dosage: 31 NG/KG, PER MIN
     Route: 042
     Dates: start: 20160225

REACTIONS (2)
  - Sinus operation [Not Recovered/Not Resolved]
  - Nasal disorder [Not Recovered/Not Resolved]

NARRATIVE: CASE EVENT DATE: 20160408
